FAERS Safety Report 8017947-X (Version None)
Quarter: 2012Q1

REPORT INFORMATION
  Report Type: 
  Country: None (occurrence: None)
  Receive Date: 20120103
  Receipt Date: 20111220
  Transmission Date: 20120608
  Serious: Yes (Hospitalization)
  Sender: FDA-Public Use
  Company Number: US-RANBAXY-2011US-51441

PATIENT
  Age: 51 Year
  Sex: Male

DRUGS (2)
  1. SIMVASTATIN [Suspect]
     Indication: PRODUCT USED FOR UNKNOWN INDICATION
     Route: 065
  2. BUPIVACAINE HCL [Interacting]
     Indication: PAIN
     Dosage: UNK
     Route: 042

REACTIONS (5)
  - HYPOTENSION [None]
  - HYPERHIDROSIS [None]
  - DIZZINESS [None]
  - DRUG INTERACTION [None]
  - HEPATOTOXICITY [None]
